FAERS Safety Report 20551782 (Version 1)
Quarter: 2022Q1

REPORT INFORMATION
  Report Type: Spontaneous
  Country: JP (occurrence: JP)
  Receive Date: 20220304
  Receipt Date: 20220304
  Transmission Date: 20220423
  Serious: Yes (Hospitalization)
  Sender: FDA-Public Use
  Company Number: JP-PFIZER INC-202200333953

PATIENT
  Age: 8 Decade
  Sex: Female

DRUGS (3)
  1. EFFEXOR [Suspect]
     Active Substance: VENLAFAXINE HYDROCHLORIDE
     Indication: Depression
     Dosage: 75 MG, DAILY
  2. REFLEX [Suspect]
     Active Substance: MIRTAZAPINE
     Dosage: 15 MG, DAILY
  3. RISPERDAL [Suspect]
     Active Substance: RISPERIDONE
     Dosage: 1.5 MG, DAILY

REACTIONS (1)
  - Cystitis haemorrhagic [Unknown]
